FAERS Safety Report 6162191-4 (Version None)
Quarter: 2009Q2

REPORT INFORMATION
  Report Type: 
  Country: None (occurrence: None)
  Receive Date: 20090417
  Receipt Date: 20090417
  Transmission Date: 20091009
  Serious: No
  Sender: FDA-Public Use
  Company Number: None

PATIENT
  Age: 49 Year
  Sex: Male
  Weight: 80.74 kg

DRUGS (1)
  1. PHENYTOIN [Suspect]
     Indication: CONVULSION
     Dosage: PO
     Route: 048
     Dates: start: 19951116, end: 20090314

REACTIONS (4)
  - CONVULSION [None]
  - FALL [None]
  - LABYRINTHITIS [None]
  - VISION BLURRED [None]
